FAERS Safety Report 8244027-0 (Version None)
Quarter: 2012Q1

REPORT INFORMATION
  Report Type: 
  Country: None (occurrence: None)
  Receive Date: 20120309
  Receipt Date: 20101108
  Transmission Date: 20120608
  Serious: Yes (Other)
  Sender: FDA-Public Use
  Company Number: PHHY2010US28881

PATIENT
  Age: 53 Year
  Sex: Male
  Weight: 83.9 kg

DRUGS (1)
  1. EXTAVIA [Suspect]
     Indication: MULTIPLE SCLEROSIS
     Dosage: 0.25 MG EVERY OTHER DAY, SUBCUTANEOUS
     Route: 058
     Dates: start: 20100301

REACTIONS (4)
  - INJECTION SITE ERYTHEMA [None]
  - DECREASED APPETITE [None]
  - WEIGHT DECREASED [None]
  - SKIN DEPIGMENTATION [None]
